FAERS Safety Report 5013481-X (Version None)
Quarter: 2006Q2

REPORT INFORMATION
  Report Type: 
  Country: None (occurrence: None)
  Receive Date: 20060530
  Receipt Date: 20060106
  Transmission Date: 20061013
  Serious: Yes (Hospitalization)
  Sender: FDA-Public Use
  Company Number: US-SANOFI-SYNTHELABO-A03200600176

PATIENT
  Age: 60 Year
  Sex: Male
  Weight: 65.8 kg

DRUGS (7)
  1. ELOXATIN [Suspect]
     Indication: COLON CANCER METASTATIC
     Route: 042
     Dates: start: 20050926, end: 20050926
  2. SOLU-MEDROL [Concomitant]
     Route: 042
  3. FLUOROURACIL [Concomitant]
     Route: 042
  4. BENADRYL [Concomitant]
     Route: 065
  5. LEUCOVORIN [Concomitant]
     Route: 042
  6. AVASTIN [Concomitant]
     Route: 042
  7. ALOXI [Concomitant]
     Route: 042

REACTIONS (7)
  - DYSPHAGIA [None]
  - FLUSHING [None]
  - HYPERSENSITIVITY [None]
  - PRURITUS [None]
  - SPEECH DISORDER [None]
  - SWOLLEN TONGUE [None]
  - URTICARIA [None]
